FAERS Safety Report 9988671 (Version 2)
Quarter: 2014Q1

REPORT INFORMATION
  Report Type: Spontaneous
  Country: US (occurrence: US)
  Receive Date: 20140310
  Receipt Date: 20140310
  Transmission Date: 20141002
  Serious: Yes (Other)
  Sender: FDA-Public Use
  Company Number: US-BEH-2011028116

PATIENT
  Age: 60 Year
  Sex: Female
  Weight: 112 kg

DRUGS (31)
  1. PRIVIGEN [Suspect]
     Indication: HYPOGAMMAGLOBULINAEMIA
     Dosage: 33 ML/HR FOR 60 MIN., 65ML/HR FOR 60 MIN., 131ML/HR FOR 60 MIN., 262ML/HR FOR 62 MIN.
     Route: 042
     Dates: start: 20091222
  2. PRIVIGEN [Suspect]
     Dosage: 20 GM VIAL
     Route: 042
  3. PRIVIGEN [Suspect]
     Dosage: 10 GM VIAL; OVER 1-6 HOURS
     Route: 042
  4. PRIVIGEN [Suspect]
     Dosage: 20 GM VIAL; OVER 1-6 HOURS
     Route: 042
  5. PRIVIGEN [Suspect]
     Dosage: 10 GM VIAL
     Route: 042
  6. PRIVIGEN [Suspect]
     Dosage: 20 GM VIAL
     Route: 042
  7. Z-PAK [Suspect]
  8. DIPHENHYDRAMINE [Concomitant]
  9. EPINEPHRINE [Concomitant]
  10. CIPROFLOXACIN [Concomitant]
  11. TYLENOL [Concomitant]
  12. BENADRYL [Concomitant]
  13. PROAIR HFA [Concomitant]
     Route: 055
  14. OMEPRAZOLE [Concomitant]
  15. PULMICORT [Concomitant]
     Route: 055
  16. SINGULAIR [Concomitant]
  17. ZYFLO [Concomitant]
  18. LISINOPRIL [Concomitant]
  19. CARISOPRODOL [Concomitant]
  20. ARMOUR THYROID [Concomitant]
  21. SPIRIVA [Concomitant]
     Route: 055
  22. EFFEXOR [Concomitant]
  23. LMX [Concomitant]
  24. SODIUM CHLORIDE [Concomitant]
  25. NORMAL SALINE [Concomitant]
  26. AMLODIPINE BESYLATE [Concomitant]
  27. ASTELIN [Concomitant]
  28. PHENOBARB-HYOSCY-ATROPINE-SCOP [Concomitant]
     Dosage: 16.2-1037-0.0194 MG
  29. METFORMIN [Concomitant]
  30. IBUPROFEN [Concomitant]
  31. OXYCODONE-ACETAMINOPHEN [Concomitant]

REACTIONS (3)
  - Rotator cuff repair [Unknown]
  - Sinusitis [Unknown]
  - Urticaria [Recovered/Resolved]
